FAERS Safety Report 9767613 (Version 1)
Quarter: 2013Q4

REPORT INFORMATION
  Report Type: Report from Study
  Country: MX (occurrence: MX)
  Receive Date: 20131217
  Receipt Date: 20131217
  Transmission Date: 20140711
  Serious: Yes (Death)
  Sender: FDA-Public Use
  Company Number: PHHY2013MX147370

PATIENT
  Age: 66 Year
  Sex: Male

DRUGS (1)
  1. EXFORGE HCT [Suspect]
     Indication: HYPERTENSION
     Dosage: 1 DF (160 MG VALS, 5 MG AMLO, 12.5 MG HYDR), UNK
     Route: 048

REACTIONS (1)
  - Death [Fatal]
